FAERS Safety Report 6618545-2 (Version None)
Quarter: 2010Q1

REPORT INFORMATION
  Report Type: 
  Country: None (occurrence: None)
  Receive Date: 20100308
  Receipt Date: 20100302
  Transmission Date: 20100710
  Serious: Yes (Hospitalization)
  Sender: FDA-Public Use
  Company Number: US-CEPHALON-2010001194

PATIENT
  Sex: Male
  Weight: 11 kg

DRUGS (1)
  1. PROVIGIL [Suspect]
     Route: 048
     Dates: start: 20100225

REACTIONS (11)
  - ACCIDENTAL DRUG INTAKE BY CHILD [None]
  - DELUSION [None]
  - GAIT DISTURBANCE [None]
  - HALLUCINATION [None]
  - INSOMNIA [None]
  - OVERDOSE [None]
  - PARANOIA [None]
  - PSYCHOMOTOR HYPERACTIVITY [None]
  - PYREXIA [None]
  - RESTLESSNESS [None]
  - TACHYCARDIA [None]
